FAERS Safety Report 5836037-5 (Version None)
Quarter: 2008Q3

REPORT INFORMATION
  Report Type: 
  Country: None (occurrence: None)
  Receive Date: 20080806
  Receipt Date: 20080801
  Transmission Date: 20090109
  Serious: Yes (Hospitalization)
  Sender: FDA-Public Use
  Company Number: US-GENENTECH-264706

PATIENT
  Sex: Male
  Weight: 78.005 kg

DRUGS (5)
  1. BEVACIZUMAB [Suspect]
     Indication: SQUAMOUS CELL CARCINOMA
     Dosage: 15 MG/KG, UNK
     Dates: start: 20080418, end: 20080616
  2. ERLOTINIB [Suspect]
     Indication: SQUAMOUS CELL CARCINOMA
     Dosage: 150 MG, QD
     Route: 048
     Dates: start: 20080418, end: 20080630
  3. TAXOL [Concomitant]
     Indication: SQUAMOUS CELL CARCINOMA
     Dosage: 50 MG/M2, UNK
     Dates: start: 20080418, end: 20080630
  4. FLUOROURACIL [Concomitant]
     Indication: SQUAMOUS CELL CARCINOMA
     Dosage: 200 MG/M2, UNK
     Dates: start: 20080418, end: 20080530
  5. RADIATION [Concomitant]
     Indication: SQUAMOUS CELL CARCINOMA
     Dosage: UNK
     Dates: end: 20080716

REACTIONS (1)
  - MUCOSAL INFLAMMATION [None]
